FAERS Safety Report 7498343-0 (Version None)
Quarter: 2011Q2

REPORT INFORMATION
  Report Type: 
  Country: None (occurrence: None)
  Receive Date: 20110524
  Receipt Date: 20090816
  Transmission Date: 20111010
  Serious: Yes (Death, Hospitalization)
  Sender: FDA-Public Use
  Company Number: US-BAYER-200929616NA

PATIENT
  Age: 57 Year
  Sex: Male
  Weight: 70 kg

DRUGS (14)
  1. TRASYLOL [Suspect]
     Indication: CORONARY ARTERY BYPASS
     Dosage: TEST DOSE 1ML, 200ML PUMP PRIME DOSE
     Route: 042
     Dates: start: 20070121, end: 20070121
  2. PROTAMINE SULFATE [Concomitant]
     Dosage: 300MG
     Route: 042
     Dates: start: 20070121
  3. FENTANYL [Concomitant]
     Dosage: 750MCG
     Route: 042
     Dates: start: 20070121
  4. PLAVIX [Concomitant]
  5. HEPARIN [Concomitant]
     Dosage: 30 UNITS
     Route: 042
     Dates: start: 20070121
  6. NITROGLYCERIN [Concomitant]
     Dosage: 13.12MG
     Route: 042
     Dates: start: 20070121
  7. DIPHENHYDRAMINE HCL [Concomitant]
     Dosage: 100MG
     Route: 042
     Dates: start: 20070121
  8. NORVASC [Concomitant]
  9. MILRINONE [Concomitant]
     Dosage: 1.23MCG
     Route: 042
     Dates: start: 20070121
  10. PLASMA [Concomitant]
     Dosage: 4 U, UNK
     Dates: start: 20070121
  11. INSULIN [Concomitant]
     Dosage: 70 UNITS BOLUS TITRATED DRIP 58.67 UNITS
     Route: 042
     Dates: start: 20070121
  12. PEPCID [Concomitant]
     Dosage: 40MG
     Route: 042
     Dates: start: 20070121
  13. MILRINONE [Concomitant]
     Dosage: 4MG
     Route: 042
     Dates: start: 20070121
  14. PLATELETS [Concomitant]
     Dosage: 10 U, UNK
     Dates: start: 20070121

REACTIONS (9)
  - DEATH [None]
  - INJURY [None]
  - RENAL FAILURE [None]
  - UNEVALUABLE EVENT [None]
  - FEAR [None]
  - DEPRESSION [None]
  - ANHEDONIA [None]
  - ANXIETY [None]
  - PAIN [None]
